FAERS Safety Report 11220971 (Version 1)
Quarter: 2015Q2

REPORT INFORMATION
  Report Type: Spontaneous
  Country: US (occurrence: None)
  Receive Date: 20150625
  Receipt Date: 20150625
  Transmission Date: 20150821
  Serious: Yes (Hospitalization)
  Sender: FDA-Public Use
  Company Number: None

PATIENT
  Age: 80 Year
  Sex: Female

DRUGS (1)
  1. FORTEO [Suspect]
     Active Substance: TERIPARATIDE
     Indication: PRODUCT USED FOR UNKNOWN INDICATION
     Dosage: 20MG, DAILY, SQ
     Route: 058
     Dates: start: 20140529, end: 20150620

REACTIONS (3)
  - Atrial fibrillation [None]
  - Laceration [None]
  - Stomach mass [None]

NARRATIVE: CASE EVENT DATE: 20150620
